FAERS Safety Report 9112025 (Version 1)
Quarter: 2013Q1

REPORT INFORMATION
  Report Type: Spontaneous
  Country: US (occurrence: US)
  Receive Date: 20130219
  Receipt Date: 20130219
  Transmission Date: 20140127
  Serious: Yes (Other)
  Sender: FDA-Public Use
  Company Number: US-BRISTOL-MYERS SQUIBB COMPANY-16403529

PATIENT
  Age: 50 Year
  Sex: Male

DRUGS (3)
  1. ORENCIA [Suspect]
     Indication: RHEUMATOID ARTHRITIS
     Dosage: LAST INFUSION ON 14FEB2012, 10MAY2012,JUN12
     Route: 042
     Dates: start: 20120214, end: 201206
  2. PREDNISONE [Concomitant]
  3. METHOTREXATE [Concomitant]

REACTIONS (6)
  - Pain in extremity [Not Recovered/Not Resolved]
  - Pain [Unknown]
  - Local swelling [Unknown]
  - Poor quality sleep [Unknown]
  - Fatigue [Unknown]
  - Malaise [Recovering/Resolving]
